FAERS Safety Report 4444357-4 (Version None)
Quarter: 2004Q3

REPORT INFORMATION
  Report Type: 
  Country: None (occurrence: None)
  Receive Date: 20040730
  Receipt Date: 20040514
  Transmission Date: 20050211
  Serious: Yes (Hospitalization)
  Sender: FDA-Public Use
  Company Number: 03P-163-0242819-00

PATIENT
  Age: 37 Year
  Sex: Female

DRUGS (5)
  1. NORVIR [Suspect]
     Indication: HIV INFECTION
     Dosage: 200 MG, 1 IN 1 D, PER ORAL;  100 MG, PER ORAL
     Route: 048
     Dates: start: 20031029, end: 20031117
  2. NORVIR [Suspect]
     Indication: HIV INFECTION
     Dosage: 200 MG, 1 IN 1 D, PER ORAL;  100 MG, PER ORAL
     Route: 048
     Dates: start: 20031125
  3. INDINAVIR SULFATE [Concomitant]
  4. ZIDOVUDINE W/LAMIVUDINE [Concomitant]
  5. ROYATAZ [Concomitant]

REACTIONS (2)
  - CYSTITIS HAEMORRHAGIC [None]
  - NEPHROLITHIASIS [None]
